FAERS Safety Report 12678989 (Version 2)
Quarter: 2016Q3

REPORT INFORMATION
  Report Type: Spontaneous
  Country: US (occurrence: US)
  Receive Date: 20160824
  Receipt Date: 20160829
  Transmission Date: 20161109
  Serious: Yes (Other)
  Sender: FDA-Public Use
  Company Number: US-BAUSCH-BL-2016-018624

PATIENT
  Age: 83 Year
  Sex: Male

DRUGS (4)
  1. TOBRAMYCIN OPHTHALMIC SOLUTION USP 0.3% [Suspect]
     Active Substance: TOBRAMYCIN
     Indication: POSTOPERATIVE CARE
     Dosage: INSTILLED INTO LEFT EYE
     Route: 065
     Dates: start: 20160802
  2. DEPO-MEDROL [Concomitant]
     Active Substance: METHYLPREDNISOLONE ACETATE
     Indication: PRODUCT USED FOR UNKNOWN INDICATION
  3. RAMIPRIL. [Concomitant]
     Active Substance: RAMIPRIL
     Indication: PRODUCT USED FOR UNKNOWN INDICATION
  4. ATORVASTATIN [Concomitant]
     Active Substance: ATORVASTATIN
     Indication: PRODUCT USED FOR UNKNOWN INDICATION

REACTIONS (2)
  - Eye pruritus [Recovering/Resolving]
  - Hypoacusis [Unknown]

NARRATIVE: CASE EVENT DATE: 20160802
